FAERS Safety Report 5011339-3 (Version None)
Quarter: 2006Q2

REPORT INFORMATION
  Report Type: 
  Country: None (occurrence: None)
  Receive Date: 20060524
  Receipt Date: 20060518
  Transmission Date: 20061013
  Serious: Yes (Other)
  Sender: FDA-Public Use
  Company Number: 2006PV013656

PATIENT
  Sex: Female
  Weight: 98.4306 kg

DRUGS (2)
  1. BYETTA [Suspect]
     Indication: DIABETES MELLITUS NON-INSULIN-DEPENDENT
     Dosage: BID; SC
     Route: 058
     Dates: start: 20051201
  2. PROZAC [Concomitant]

REACTIONS (3)
  - ABDOMINAL ABSCESS [None]
  - CHEST WALL ABSCESS [None]
  - INJECTION SITE ABSCESS [None]
